FAERS Safety Report 6922688-3 (Version None)
Quarter: 2010Q3

REPORT INFORMATION
  Report Type: 
  Country: None (occurrence: None)
  Receive Date: 20100813
  Receipt Date: 20100803
  Transmission Date: 20110219
  Serious: Yes (Other)
  Sender: FDA-Public Use
  Company Number: PHHY2010CA51891

PATIENT
  Sex: Female

DRUGS (2)
  1. CLOZARIL [Suspect]
     Dosage: UNK
     Dates: start: 20030221, end: 20070129
  2. CLOZAPINE [Suspect]
     Dosage: UNK
     Dates: start: 20070129, end: 20100707

REACTIONS (1)
  - TYPE 2 DIABETES MELLITUS [None]
